FAERS Safety Report 5276229-X (Version None)
Quarter: 2007Q1

REPORT INFORMATION
  Report Type: 
  Country: None (occurrence: None)
  Receive Date: 20070326
  Receipt Date: 20070316
  Transmission Date: 20070707
  Serious: Yes (Hospitalization)
  Sender: FDA-Public Use
  Company Number: DE-BOEHRINGER INGELHEIM PHARMACEUTICALS, INC.-2007-DE-01612DE

PATIENT
  Sex: Female
  Weight: 55 kg

DRUGS (2)
  1. VIRAMUNE [Suspect]
     Indication: HIV INFECTION
     Route: 048
     Dates: start: 20061030
  2. TRUVADA [Concomitant]
     Indication: HIV INFECTION
     Dosage: 300/200 MG/D
     Route: 048
     Dates: start: 20061030

REACTIONS (1)
  - ABORTION SPONTANEOUS [None]
